FAERS Safety Report 10062596 (Version 1)
Quarter: 2014Q2

REPORT INFORMATION
  Report Type: Spontaneous
  Country: US (occurrence: US)
  Receive Date: 20140407
  Receipt Date: 20140407
  Transmission Date: 20141212
  Serious: Yes (Other)
  Sender: FDA-Public Use
  Company Number: US-PFIZER INC-2014096923

PATIENT
  Age: 68 Year
  Sex: Male
  Weight: 68.03 kg

DRUGS (5)
  1. NORVASC [Suspect]
     Indication: HYPERTENSION
     Dosage: 5 MG, DAILY
  2. LIPITOR [Suspect]
     Indication: BLOOD CHOLESTEROL INCREASED
     Dosage: 20 MG,DAILY
  3. CELEBREX [Suspect]
     Indication: MUSCULOSKELETAL PAIN
     Dosage: 100 MG, AS NEEDED
  4. VIAGRA [Suspect]
     Indication: ERECTILE DYSFUNCTION
     Dosage: 100 MG, AS NEEDED
  5. PROCARDIA [Suspect]
     Indication: HYPERTENSION
     Dosage: (60 MG IN MORNING AND 30 MG IN THE EVENING), 2X/DAY

REACTIONS (1)
  - Deafness unilateral [Unknown]
